FAERS Safety Report 6118161-5 (Version None)
Quarter: 2009Q1

REPORT INFORMATION
  Report Type: 
  Country: None (occurrence: None)
  Receive Date: 20090314
  Receipt Date: 20090205
  Transmission Date: 20090719
  Serious: No
  Sender: FDA-Public Use
  Company Number: US-ABBOTT-09P-163-0502238-00

PATIENT
  Sex: Female
  Weight: 106.69 kg

DRUGS (3)
  1. HUMIRA [Suspect]
     Indication: PSORIASIS
     Route: 058
     Dates: start: 20081001
  2. SIMVASTATIN [Suspect]
     Indication: BLOOD CHOLESTEROL INCREASED
     Dates: start: 20090115
  3. THYROXINE [Suspect]
     Indication: HYPOTHYROIDISM

REACTIONS (3)
  - ABDOMINAL DISTENSION [None]
  - DRUG INEFFECTIVE [None]
  - WEIGHT LOSS POOR [None]
